FAERS Safety Report 8048995-1 (Version None)
Quarter: 2011Q4

REPORT INFORMATION
  Report Type: 
  Country: None (occurrence: None)
  Receive Date: 20111209
  Receipt Date: 20110901
  Transmission Date: 20120403
  Serious: No
  Sender: FDA-Public Use
  Company Number: 2011SP041524

PATIENT
  Age: 55 Year
  Sex: Female

DRUGS (9)
  1. SYNTHROID [Concomitant]
  2. MAXZIDE [Concomitant]
  3. ZYRTEC [Concomitant]
  4. NEXIUM [Concomitant]
  5. VICTRELIS [Suspect]
     Indication: HEPATITIS C
     Dosage: 800 MG;TID; PO
     Route: 048
     Dates: start: 20110610, end: 20110801
  6. RIBAVIRIN [Suspect]
     Indication: HEPATITIS C
  7. CELEXA [Concomitant]
  8. PEG-INTRON [Concomitant]
     Indication: HEPATITIS C
  9. AMBIEN [Concomitant]

REACTIONS (1)
  - DRUG EFFECT DECREASED [None]
